FAERS Safety Report 11739931 (Version 2)
Quarter: 2015Q4

REPORT INFORMATION
  Report Type: Spontaneous
  Country: US (occurrence: US)
  Receive Date: 20151110
  Receipt Date: 20151120
  Transmission Date: 20160304
  Serious: No
  Sender: FDA-Public Use
  Company Number: US-ELI_LILLY_AND_COMPANY-US201206008224

PATIENT
  Age: 80 Year
  Sex: Female

DRUGS (1)
  1. FORTEO [Suspect]
     Active Substance: TERIPARATIDE
     Indication: OSTEOPOROSIS
     Dosage: 20 UG, QD
     Dates: start: 20120530, end: 20120704

REACTIONS (9)
  - Decreased appetite [Recovered/Resolved]
  - Nausea [Recovering/Resolving]
  - Intentional product misuse [Unknown]
  - Ulcer [Recovering/Resolving]
  - Myalgia [Recovering/Resolving]
  - Malaise [Unknown]
  - Weight decreased [Unknown]
  - Gastrointestinal disorder [Recovering/Resolving]
  - Dizziness [Recovering/Resolving]

NARRATIVE: CASE EVENT DATE: 20120704
